FAERS Safety Report 12118319 (Version 2)
Quarter: 2016Q2

REPORT INFORMATION
  Report Type: Report from Study
  Country: US (occurrence: US)
  Receive Date: 20160226
  Receipt Date: 20160413
  Transmission Date: 20160815
  Serious: Yes (Other)
  Sender: FDA-Public Use
  Company Number: PHEH2016US004559

PATIENT
  Age: 52 Year
  Sex: Female

DRUGS (1)
  1. GILENYA [Suspect]
     Active Substance: FINGOLIMOD HYDROCHLORIDE
     Indication: RELAPSING-REMITTING MULTIPLE SCLEROSIS
     Dosage: 0.5 MG, QD
     Route: 048
     Dates: start: 20160212

REACTIONS (15)
  - Muscle spasms [Recovering/Resolving]
  - Pain in extremity [Recovering/Resolving]
  - Skin discolouration [Recovering/Resolving]
  - Multiple sclerosis relapse [Recovering/Resolving]
  - Nasal congestion [Recovering/Resolving]
  - Paraesthesia [Recovering/Resolving]
  - Anxiety disorder [Unknown]
  - Back pain [Recovering/Resolving]
  - Sinusitis [Recovering/Resolving]
  - Cough [Recovering/Resolving]
  - Headache [Recovering/Resolving]
  - Stress [Recovering/Resolving]
  - Diarrhoea [Recovering/Resolving]
  - Gait disturbance [Recovering/Resolving]
  - Dizziness [Recovering/Resolving]

NARRATIVE: CASE EVENT DATE: 20160222
